FAERS Safety Report 4679541-8 (Version None)
Quarter: 2005Q2

REPORT INFORMATION
  Report Type: 
  Country: None (occurrence: None)
  Receive Date: 20050602
  Receipt Date: 20041118
  Transmission Date: 20051028
  Serious: Yes (Death, Disabling)
  Sender: FDA-Public Use
  Company Number: 200413552JP

PATIENT
  Age: 50 Year
  Sex: Female
  Weight: 38 kg

DRUGS (15)
  1. ARAVA [Suspect]
     Indication: RHEUMATOID ARTHRITIS
     Route: 048
     Dates: start: 20040602, end: 20040624
  2. LEDERCORT [Concomitant]
     Indication: RHEUMATOID ARTHRITIS
     Route: 048
     Dates: end: 20040601
  3. AZULFIDINE [Concomitant]
     Indication: RHEUMATOID ARTHRITIS
     Route: 048
     Dates: end: 20040507
  4. AMLODIN [Concomitant]
     Indication: HYPERTENSION
     Route: 048
  5. NU-LOTAN [Concomitant]
     Indication: HYPERTENSION
     Route: 048
  6. BUFFERIN [Concomitant]
     Indication: CEREBRAL INFARCTION
     Route: 048
     Dates: end: 20040507
  7. WARFARIN SODIUM [Concomitant]
     Indication: DEEP VEIN THROMBOSIS
     Route: 048
     Dates: start: 20040107, end: 20040506
  8. LASIX [Concomitant]
     Indication: CARDIAC FAILURE
     Route: 048
     Dates: start: 20040210, end: 20040514
  9. MUCOSTA [Concomitant]
     Indication: GASTRIC ULCER
     Route: 048
  10. SEVEN EP [Concomitant]
     Indication: GASTRIC ULCER
     Dosage: DOSE: 3 CAPS/DAY
     Route: 048
     Dates: end: 20040601
  11. ALLOID [Concomitant]
     Indication: GASTRIC ULCER
     Route: 048
     Dates: start: 20040507
  12. GASTER [Concomitant]
     Indication: GASTRIC ULCER
     Route: 048
     Dates: start: 20040602
  13. BONALON [Concomitant]
     Indication: OSTEOPOROSIS
     Route: 048
     Dates: start: 20040527
  14. FERRUM [Concomitant]
     Indication: IRON DEFICIENCY ANAEMIA
     Route: 048
     Dates: start: 20040527
  15. PREDNISOLONE [Concomitant]
     Indication: RHEUMATOID ARTHRITIS
     Route: 048
     Dates: start: 20040602

REACTIONS (9)
  - AMYLOIDOSIS [None]
  - ANOREXIA [None]
  - ASCITES [None]
  - BLOOD AMYLASE INCREASED [None]
  - CARDIAC ARREST [None]
  - DIALYSIS [None]
  - RENAL DISORDER [None]
  - RENAL FAILURE [None]
  - SEPSIS [None]
